FAERS Safety Report 8567413-8 (Version None)
Quarter: 2012Q3

REPORT INFORMATION
  Report Type: 
  Country: None (occurrence: None)
  Receive Date: 20120803
  Receipt Date: 20120730
  Transmission Date: 20120928
  Serious: Yes (Other)
  Sender: FDA-Public Use
  Company Number: PHHY2012AR062530

PATIENT
  Sex: Female

DRUGS (5)
  1. AMINOPYRIDINE [Concomitant]
  2. ALPRAZOLAM [Concomitant]
  3. SERTRALINE HYDROCHLORIDE [Concomitant]
  4. GILENYA [Suspect]
     Indication: MULTIPLE SCLEROSIS
     Dosage: 1 DF, QD
     Route: 048
     Dates: start: 20120301
  5. VITAMINS NOS [Concomitant]

REACTIONS (11)
  - HEADACHE [None]
  - DYSPEPSIA [None]
  - EYE PAIN [None]
  - DECREASED APPETITE [None]
  - ALOPECIA [None]
  - LIVER DISORDER [None]
  - ABDOMINAL PAIN [None]
  - DIZZINESS [None]
  - VOMITING [None]
  - NAUSEA [None]
  - BACK PAIN [None]
